FAERS Safety Report 4855007-7 (Version None)
Quarter: 2005Q4

REPORT INFORMATION
  Report Type: 
  Country: None (occurrence: None)
  Receive Date: 20051214
  Receipt Date: 20051201
  Transmission Date: 20060501
  Serious: Yes (Hospitalization, Other)
  Sender: FDA-Public Use
  Company Number: 2005JP002322

PATIENT
  Age: 55 Year
  Sex: Female

DRUGS (3)
  1. PROGRAF [Suspect]
     Indication: MYASTHENIA GRAVIS
     Dosage: SEE IMAGE
     Dates: start: 20050101, end: 20050101
  2. PROGRAF [Suspect]
     Indication: MYASTHENIA GRAVIS
     Dosage: SEE IMAGE
     Dates: end: 20050101
  3. PREDNISOLONE [Concomitant]

REACTIONS (5)
  - ABDOMINAL ABSCESS [None]
  - ADENOCARCINOMA PANCREAS [None]
  - CALCULUS URETERIC [None]
  - CHOLECYSTITIS ACUTE [None]
  - CHOLELITHIASIS [None]
